FAERS Safety Report 12500046 (Version 3)
Quarter: 2016Q4

REPORT INFORMATION
  Report Type: Spontaneous
  Country: US (occurrence: US)
  Receive Date: 20160627
  Receipt Date: 20161216
  Transmission Date: 20170207
  Serious: No
  Sender: FDA-Public Use
  Company Number: US-GLAXOSMITHKLINE-US2016GSK084258

PATIENT
  Age: 47 Year
  Sex: Female

DRUGS (2)
  1. CELLCEPT [Concomitant]
     Active Substance: MYCOPHENOLATE MOFETIL\MYCOPHENOLATE MOFETIL HYDROCHLORIDE
  2. BENLYSTA [Suspect]
     Active Substance: BELIMUMAB
     Indication: SYSTEMIC LUPUS ERYTHEMATOSUS
     Dosage: UNK
     Dates: start: 20160504

REACTIONS (11)
  - Malaise [Unknown]
  - Diarrhoea [Unknown]
  - Drug dose omission [Unknown]
  - Myalgia [Unknown]
  - Pain in extremity [Unknown]
  - Sinusitis [Unknown]
  - Fatigue [Unknown]
  - Muscle spasms [Unknown]
  - Peripheral swelling [Unknown]
  - Pyrexia [Unknown]
  - Insomnia [Unknown]

NARRATIVE: CASE EVENT DATE: 20160617
